FAERS Safety Report 5464867-0 (Version None)
Quarter: 2007Q3

REPORT INFORMATION
  Report Type: 
  Country: None (occurrence: None)
  Receive Date: 20070921
  Receipt Date: 20070911
  Transmission Date: 20080115
  Serious: Yes (Death, Life-Threatening)
  Sender: FDA-Public Use
  Company Number: US-PFIZER INC-2007076397

PATIENT
  Sex: Female

DRUGS (3)
  1. LYRICA [Suspect]
     Indication: FIBROMYALGIA
  2. ZOLOFT [Concomitant]
  3. MOTRIN [Concomitant]

REACTIONS (3)
  - DEATH [None]
  - MALAISE [None]
  - VOMITING [None]
